FAERS Safety Report 8201164-4 (Version None)
Quarter: 2012Q1

REPORT INFORMATION
  Report Type: 
  Country: None (occurrence: None)
  Receive Date: 20120312
  Receipt Date: 20120228
  Transmission Date: 20120608
  Serious: Yes (Hospitalization, Other)
  Sender: FDA-Public Use
  Company Number: PHHY2012FR018431

PATIENT
  Sex: Male

DRUGS (3)
  1. NEORAL [Suspect]
     Indication: BONE MARROW TRANSPLANT
  2. GLEEVEC [Concomitant]
     Dosage: 400 MG, QD
  3. CORTICOSTEROID NOS [Concomitant]

REACTIONS (12)
  - OSTEOMYELITIS [None]
  - SCLERODERMA [None]
  - MACULAR OEDEMA [None]
  - CHRONIC GRAFT VERSUS HOST DISEASE [None]
  - GRAFT VERSUS HOST DISEASE IN LUNG [None]
  - RETINAL HAEMORRHAGE [None]
  - DYSPNOEA [None]
  - DRY EYE [None]
  - GRAFT VERSUS HOST DISEASE IN SKIN [None]
  - ACUTE GRAFT VERSUS HOST DISEASE [None]
  - GRAFT VERSUS HOST DISEASE IN LIVER [None]
  - THROMBOCYTOPENIA [None]
